FAERS Safety Report 6415556-7 (Version None)
Quarter: 2009Q4

REPORT INFORMATION
  Report Type: 
  Country: None (occurrence: None)
  Receive Date: 20091027
  Receipt Date: 20091022
  Transmission Date: 20100525
  Serious: Yes (Other)
  Sender: FDA-Public Use
  Company Number: US-BRISTOL-MYERS SQUIBB COMPANY-14827406

PATIENT
  Age: 74 Year
  Sex: Male
  Weight: 92 kg

DRUGS (1)
  1. IXEMPRA KIT [Suspect]
     Indication: PROSTATE CANCER
     Dosage: 20MG/M2 IV OVER 1HR ON DAYS 1,8 AND 15(+/-1DAY),CYCLE 28DAYS,NO.OF COURSE:4
     Route: 042
     Dates: start: 20041130, end: 20041207

REACTIONS (2)
  - HYPOALBUMINAEMIA [None]
  - LYMPHOPENIA [None]
